FAERS Safety Report 4796542-X (Version None)
Quarter: 2005Q4

REPORT INFORMATION
  Report Type: 
  Country: None (occurrence: None)
  Receive Date: 20051007
  Receipt Date: 20050921
  Transmission Date: 20060501
  Serious: Yes (Hospitalization, Other)
  Sender: FDA-Public Use
  Company Number: DSA_26873_2005

PATIENT
  Age: 80 Year
  Sex: Female

DRUGS (13)
  1. RENIVACE [Suspect]
     Indication: HYPERTENSION
     Dosage: 5 MG QD PO
     Route: 048
     Dates: start: 20050623, end: 20050806
  2. TRYPTANOL [Suspect]
     Indication: NOCTURIA
     Dosage: 10 MG QD PO
     Route: 048
     Dates: start: 20050801, end: 20050823
  3. MYSLEE [Suspect]
     Indication: INSOMNIA
     Dosage: 5 MG Q DAY PO
     Route: 048
     Dates: start: 20050617, end: 20050804
  4. TEGRETOL [Suspect]
     Indication: EPILEPSY
     Dosage: 200 MG BID PO
     Route: 048
     Dates: start: 20050620, end: 20050804
  5. GASTER [Suspect]
     Indication: GASTRIC ULCER
     Dosage: 20 MG Q DAY PO
     Route: 048
     Dates: start: 20050623, end: 20050802
  6. AMLODIPINE BESYLATE [Concomitant]
  7. CLARITIN [Concomitant]
  8. MAGMITT [Concomitant]
  9. NORVASC [Concomitant]
  10. PURSENNID [Concomitant]
  11. TANATRIL [Concomitant]
  12. FUROSEMIDE [Concomitant]
  13. ATEMINON [Concomitant]

REACTIONS (13)
  - AGRANULOCYTOSIS [None]
  - BLOOD ALKALINE PHOSPHATASE INCREASED [None]
  - C-REACTIVE PROTEIN INCREASED [None]
  - CONDITION AGGRAVATED [None]
  - CYSTITIS [None]
  - DYSURIA [None]
  - EPILEPSY [None]
  - GAMMA-GLUTAMYLTRANSFERASE INCREASED [None]
  - NOCTURIA [None]
  - PLATELET COUNT DECREASED [None]
  - PRURITUS [None]
  - RED BLOOD CELL COUNT DECREASED [None]
  - URINARY TRACT INFECTION [None]
